FAERS Safety Report 7706247-0 (Version None)
Quarter: 2011Q3

REPORT INFORMATION
  Report Type: 
  Country: None (occurrence: None)
  Receive Date: 20110824
  Receipt Date: 20110817
  Transmission Date: 20111222
  Serious: Yes (Death)
  Sender: FDA-Public Use
  Company Number: JP-ROCHE-772280

PATIENT
  Sex: Male
  Weight: 63 kg

DRUGS (7)
  1. PEGASYS [Suspect]
     Indication: CHRONIC HEPATITIS
     Route: 058
     Dates: start: 20100108, end: 20110415
  2. VENA PASTA [Concomitant]
     Route: 003
     Dates: start: 20100305, end: 20110415
  3. COPEGUS [Suspect]
     Dosage: DOSAGE IS UNCERTAIN
     Route: 048
     Dates: start: 20100904, end: 20110204
  4. CLARITIN [Concomitant]
     Route: 048
     Dates: start: 20100108, end: 20110415
  5. COPEGUS [Suspect]
     Dosage: DOSAGE IS UNCERTAIN.
     Route: 048
     Dates: start: 20100108, end: 20100904
  6. COPEGUS [Suspect]
     Route: 048
     Dates: start: 20110205, end: 20110415
  7. MAGMITT [Concomitant]
     Route: 048
     Dates: start: 20110204, end: 20110415

REACTIONS (1)
  - SUBARACHNOID HAEMORRHAGE [None]
